FAERS Safety Report 7893408-3 (Version None)
Quarter: 2011Q4

REPORT INFORMATION
  Report Type: 
  Country: None (occurrence: None)
  Receive Date: 20111104
  Receipt Date: 20111103
  Transmission Date: 20120403
  Serious: Yes (Hospitalization, Other)
  Sender: FDA-Public Use
  Company Number: US-ABBOTT-10P-163-0685566-00

PATIENT
  Sex: Female
  Weight: 86.26 kg

DRUGS (14)
  1. BENADRYL [Concomitant]
     Indication: PSORIASIS
  2. PRILOSEC [Concomitant]
     Indication: GASTROOESOPHAGEAL REFLUX DISEASE
  3. COZAAR [Concomitant]
     Indication: HYPERTENSION
  4. PROPRANOLOL [Concomitant]
     Indication: HYPERTENSION
  5. HYDROCHLOROTHIAZIDE [Concomitant]
     Indication: HYPERTENSION
  6. HUMIRA [Suspect]
     Indication: PSORIASIS
     Route: 058
     Dates: start: 20070101, end: 20100201
  7. HUMIRA [Suspect]
     Route: 058
     Dates: start: 20110401, end: 20110801
  8. TYLENOL-500 [Concomitant]
     Indication: PAIN
     Dosage: 1000 MG TWICE A DAY
  9. TACLONEX [Concomitant]
     Indication: PSORIASIS
     Route: 061
  10. ZOLOFT [Concomitant]
     Indication: ANXIETY
  11. BENADRYL [Concomitant]
     Indication: PRODUCT USED FOR UNKNOWN INDICATION
  12. ASPIRIN [Concomitant]
     Indication: CARDIAC DISORDER
  13. HUMIRA [Suspect]
     Indication: PSORIATIC ARTHROPATHY
     Route: 058
     Dates: start: 20100501, end: 20100913
  14. STATIN [Concomitant]
     Indication: BLOOD CHOLESTEROL INCREASED

REACTIONS (9)
  - DEHYDRATION [None]
  - FALL [None]
  - LACERATION [None]
  - APHAGIA [None]
  - CLOSTRIDIAL INFECTION [None]
  - BREAST CANCER [None]
  - CONTUSION [None]
  - ABDOMINAL PAIN [None]
  - DIARRHOEA [None]
